FAERS Safety Report 4822404-5 (Version None)
Quarter: 2005Q4

REPORT INFORMATION
  Report Type: 
  Country: None (occurrence: None)
  Receive Date: 20051104
  Receipt Date: 20051104
  Transmission Date: 20060501
  Serious: Yes (Hospitalization)
  Sender: FDA-Public Use
  Company Number: None

PATIENT
  Age: 76 Year
  Sex: Male
  Weight: 110.2241 kg

DRUGS (1)
  1. METFORMIN   1000 MG [Suspect]
     Dosage: 1000 MG  BID PO
     Route: 048
     Dates: start: 20030401, end: 20051023

REACTIONS (3)
  - ANION GAP [None]
  - LACTIC ACIDOSIS [None]
  - METABOLIC ACIDOSIS [None]
